FAERS Safety Report 22050112 (Version 2)
Quarter: 2023Q1

REPORT INFORMATION
  Report Type: Spontaneous
  Country: US (occurrence: US)
  Receive Date: 20230301
  Receipt Date: 20230322
  Transmission Date: 20230417
  Serious: No
  Sender: FDA-Public Use
  Company Number: US-SA-SAC20230228000726

PATIENT
  Age: 47 Year
  Sex: Female
  Weight: 62.585 kg

DRUGS (4)
  1. AUBAGIO [Suspect]
     Active Substance: TERIFLUNOMIDE
     Indication: Multiple sclerosis
     Dosage: 7 MG, QD
     Route: 048
     Dates: start: 20190107
  2. LITHIUM [Suspect]
     Active Substance: LITHIUM
     Dosage: UNK
  3. CLONAZEPAM [Suspect]
     Active Substance: CLONAZEPAM
  4. TEMAZEPAM [Suspect]
     Active Substance: TEMAZEPAM

REACTIONS (1)
  - Tremor [Recovering/Resolving]

NARRATIVE: CASE EVENT DATE: 20230201
